FAERS Safety Report 5322960-7 (Version None)
Quarter: 2007Q1

REPORT INFORMATION
  Report Type: 
  Country: None (occurrence: None)
  Receive Date: 20070220
  Receipt Date: 20061113
  Transmission Date: 20070707
  Serious: No
  Sender: FDA-Public Use
  Company Number: TPA2006A02039

PATIENT
  Age: 74 Year
  Sex: Male
  Weight: 90.7194 kg

DRUGS (4)
  1. ROZEREM [Suspect]
     Indication: SLEEP DISORDER
     Dosage: 8 MG, HS, PER ORAL
     Route: 048
     Dates: start: 20061109
  2. LIPITOR [Concomitant]
  3. AVANDIA [Concomitant]
  4. UNKNOWN HIGH BLOOD PRESSURE MEDICATION (ALL OTHER THERAPEUTIC PRODUCTS [Concomitant]

REACTIONS (1)
  - MIDDLE INSOMNIA [None]
